FAERS Safety Report 4596435-7 (Version None)
Quarter: 2005Q1

REPORT INFORMATION
  Report Type: 
  Country: None (occurrence: None)
  Receive Date: 20050228
  Receipt Date: 20050214
  Transmission Date: 20050727
  Serious: Yes (Hospitalization)
  Sender: FDA-Public Use
  Company Number: 2002098608DE

PATIENT
  Age: 64 Year
  Sex: Female

DRUGS (8)
  1. CAMPTOSAR [Suspect]
     Indication: GASTRIC CANCER
     Dosage: 120 MG (CYCLIC INTERVAL: WEEKLY), INTRAVENOUS
     Route: 042
     Dates: start: 20020208, end: 20020307
  2. CISPLATIN [Concomitant]
  3. FOLIC ACID [Concomitant]
  4. FLUOROURACIL [Concomitant]
  5. DOXEPIN HYDROCHLORIDE [Concomitant]
  6. CYANOCOBALAMIN [Concomitant]
  7. LOPERAMIDE HCL [Concomitant]
  8. PROCHLORPERAZINE [Concomitant]

REACTIONS (6)
  - ASTHENIA [None]
  - CACHEXIA [None]
  - ORAL INTAKE REDUCED [None]
  - PERFORMANCE STATUS DECREASED [None]
  - SHOCK [None]
  - TACHYCARDIA [None]
